FAERS Safety Report 19206516 (Version 1)
Quarter: 2021Q2

REPORT INFORMATION
  Report Type: Spontaneous
  Country: US (occurrence: US)
  Receive Date: 20210501
  Receipt Date: 20210501
  Transmission Date: 20210717
  Serious: Yes (Hospitalization)
  Sender: FDA-Public Use
  Company Number: None

PATIENT
  Age: 63 Year
  Sex: Male
  Weight: 113 kg

DRUGS (1)
  1. CYTARABINE. [Suspect]
     Active Substance: CYTARABINE
     Dates: end: 20210416

REACTIONS (19)
  - Neutrophil count decreased [None]
  - Nausea [None]
  - Abdominal pain [None]
  - Tachycardia [None]
  - Septic shock [None]
  - Acute kidney injury [None]
  - Myocardial infarction [None]
  - Chills [None]
  - Vomiting [None]
  - Pneumonia [None]
  - Abdominal infection [None]
  - White blood cell count decreased [None]
  - Ischaemic hepatitis [None]
  - Atrial fibrillation [None]
  - Dyspnoea [None]
  - Hypomagnesaemia [None]
  - Platelet count decreased [None]
  - Seizure [None]
  - Atelectasis [None]

NARRATIVE: CASE EVENT DATE: 20210425
